FAERS Safety Report 5256445-3 (Version None)
Quarter: 2007Q1

REPORT INFORMATION
  Report Type: 
  Country: None (occurrence: None)
  Receive Date: 20070306
  Receipt Date: 20070222
  Transmission Date: 20070707
  Serious: Yes (Hospitalization)
  Sender: FDA-Public Use
  Company Number: CZ-ELI_LILLY_AND_COMPANY-CZ200702000023

PATIENT
  Age: 17 Year
  Sex: Female

DRUGS (5)
  1. ZYPREXA [Suspect]
     Indication: PSYCHOTIC DISORDER
     Dosage: 15 MG, DAILY (1/D)
     Route: 048
     Dates: start: 20060302, end: 20070102
  2. ZYPREXA [Suspect]
     Dosage: 7.5 MG, DAILY (1/D)
     Dates: start: 20070103, end: 20070126
  3. LAMICTAL                                /SCH/ [Concomitant]
     Indication: AFFECTIVE DISORDER
     Dosage: 100 MG, 2/D
     Route: 048
  4. VENLAFAXINE HCL [Concomitant]
     Indication: DEPRESSION
     Dosage: 75 MG, EACH MORNING
     Route: 048
  5. JEANINE [Concomitant]
     Indication: CONTRACEPTION
     Dosage: UNK UNK, DAILY (1/D)
     Route: 048

REACTIONS (1)
  - BRONCHITIS [None]
